FAERS Safety Report 7934545-4 (Version None)
Quarter: 2011Q4

REPORT INFORMATION
  Report Type: 
  Country: None (occurrence: None)
  Receive Date: 20111122
  Receipt Date: 20111114
  Transmission Date: 20120403
  Serious: Yes (Other)
  Sender: FDA-Public Use
  Company Number: JP-JNJFOC-20111107432

PATIENT
  Age: 50 Year
  Sex: Male
  Weight: 53 kg

DRUGS (15)
  1. REMICADE [Suspect]
     Indication: COLITIS ULCERATIVE
     Route: 042
     Dates: start: 20110318
  2. METHYLPREDNISOLONE SODIUM SUCCINATE [Concomitant]
     Indication: COLITIS ULCERATIVE
     Route: 042
     Dates: start: 20110627, end: 20110702
  3. METHYLPREDNISOLONE SODIUM SUCCINATE [Concomitant]
     Route: 042
     Dates: start: 20101210, end: 20101210
  4. ASACOL [Concomitant]
     Indication: COLITIS ULCERATIVE
     Route: 048
     Dates: start: 20110121
  5. REMICADE [Suspect]
     Route: 042
     Dates: start: 20101224
  6. REMICADE [Suspect]
     Route: 042
     Dates: start: 20101210
  7. ASACOL [Concomitant]
     Route: 048
     Dates: start: 20101101, end: 20110120
  8. REMICADE [Suspect]
     Route: 042
     Dates: start: 20110121
  9. LOPERAMIDE HCL [Concomitant]
     Indication: COLITIS ULCERATIVE
     Route: 048
     Dates: start: 20110121, end: 20110217
  10. REMICADE [Suspect]
     Route: 042
     Dates: start: 20110512
  11. REMICADE [Suspect]
     Dosage: TOTAL NUMBER OF INFUSIONS: 6
     Route: 042
     Dates: start: 20110707
  12. LOPERAMIDE HCL [Concomitant]
     Route: 048
     Dates: start: 20110218, end: 20110316
  13. IMURAN [Concomitant]
     Indication: COLITIS ULCERATIVE
     Route: 048
     Dates: start: 20110318
  14. METHYLPREDNISOLONE SODIUM SUCCINATE [Concomitant]
     Route: 042
     Dates: start: 20110420, end: 20110420
  15. RABEPRAZOLE SODIUM [Concomitant]
     Indication: PROPHYLAXIS
     Route: 048
     Dates: start: 20110512, end: 20110803

REACTIONS (3)
  - DEHYDRATION [None]
  - COLITIS ULCERATIVE [None]
  - DYSPHAGIA [None]
